FAERS Safety Report 6646676-X (Version None)
Quarter: 2010Q1

REPORT INFORMATION
  Report Type: 
  Country: None (occurrence: None)
  Receive Date: 20100322
  Receipt Date: 20100322
  Transmission Date: 20100710
  Serious: Yes (Other)
  Sender: FDA-Public Use
  Company Number: None

PATIENT
  Age: 78 Year
  Sex: Female
  Weight: 41.6 kg

DRUGS (15)
  1. AVELOX [Suspect]
     Indication: CHRONIC OBSTRUCTIVE PULMONARY DISEASE
     Dosage: AVELOX 400 MG DAILY SQ
     Route: 058
     Dates: start: 20100311, end: 20100312
  2. AVELOX [Suspect]
     Indication: PNEUMONIA
     Dosage: AVELOX 400 MG DAILY SQ
     Route: 058
     Dates: start: 20100311, end: 20100312
  3. ACETAMINOPHEN [Concomitant]
  4. AZITHROMYCIN [Concomitant]
  5. ZYRTEC [Concomitant]
  6. DIPHENHYDRAMINE HYDROCHLORIDE [Concomitant]
  7. COLACE [Concomitant]
  8. FLOVENT [Concomitant]
  9. FLONASE [Concomitant]
  10. ZOFRAN [Concomitant]
  11. PREDNISONE TAB [Concomitant]
  12. PROMETHAZINE [Concomitant]
  13. ALBUTEROL [Concomitant]
  14. ATROVENT [Concomitant]
  15. AMBIEN [Concomitant]

REACTIONS (1)
  - SINUS TACHYCARDIA [None]
